FAERS Safety Report 8597151 (Version 2)
Quarter: 2013Q1

REPORT INFORMATION
  Report Type: Spontaneous
  Country: PT (occurrence: None)
  Receive Date: 20120523
  Receipt Date: 20121207
  Transmission Date: 20140127
  Serious: Yes (Other)
  Sender: FDA-Public Use
  Company Number: 2012000114

PATIENT
  Sex: Male

DRUGS (1)
  1. ACEON [Suspect]
     Indication: PRODUCT USED FOR UNKNOWN INDICATION
     Dosage: 5 MG, UNKNOWN, ORAL
     Route: 048

REACTIONS (2)
  - Drug ineffective [None]
  - Blood pressure increased [None]
